FAERS Safety Report 18627837 (Version 1)
Quarter: 2020Q4

REPORT INFORMATION
  Report Type: Report from Study
  Country: AT (occurrence: AT)
  Receive Date: 20201217
  Receipt Date: 20201217
  Transmission Date: 20210114
  Serious: Yes (Death)
  Sender: FDA-Public Use
  Company Number: AT-PFIZER INC-2020496603

PATIENT

DRUGS (12)
  1. CISPLATIN. [Suspect]
     Active Substance: CISPLATIN
     Indication: NEUROBLASTOMA
     Dosage: 40 MG/M2, CYCLIC (DAY 1-5 OF CYCLE 3)
  2. DACARBAZINE. [Suspect]
     Active Substance: DACARBAZINE
     Dosage: 850 MG/M2, CYCLIC, (DAY 1 OF CYCLE 2)
  3. CHLORMETHINE [Suspect]
     Active Substance: MECHLORETHAMINE
     Dosage: 6 MG/M2, CYCLIC (DAY 1 OF CYCLE 2)
  4. DACARBAZINE. [Suspect]
     Active Substance: DACARBAZINE
     Indication: NEUROBLASTOMA
     Dosage: 850 MG/M2, CYCLIC, (DAY 1 OF CYCLE 1)
  5. TENIPOSIDE. [Suspect]
     Active Substance: TENIPOSIDE
     Indication: NEUROBLASTOMA
     Dosage: 150 MG/M2, CYCLIC (DAY 1 OF CYCLE 2)
  6. DOXORUBICIN HCL [Suspect]
     Active Substance: DOXORUBICIN HYDROCHLORIDE
     Indication: NEUROBLASTOMA
     Dosage: 30 MG/M2, CYCLIC (DAY1+2  OF CYCLE 1)
  7. ETOPOSIDE. [Suspect]
     Active Substance: ETOPOSIDE
     Indication: NEUROBLASTOMA
     Dosage: 150 MG/M2, CYCLIC (DAY 3-5 OF CYCLE 3)
  8. VINCRISTINE SULFATE. [Suspect]
     Active Substance: VINCRISTINE SULFATE
     Indication: NEUROBLASTOMA
     Dosage: 1.5 MG/M2, CYCLIC (DAY 1+5 OF CYCLE 1)
  9. IFOSFAMIDE. [Suspect]
     Active Substance: IFOSFAMIDE
     Indication: NEUROBLASTOMA
     Dosage: 3000 MG/M2, CYCLIC (DAY 1+2 OF CYCLE 3)
  10. CYCLOPHOSPHAMIDE. [Suspect]
     Active Substance: CYCLOPHOSPHAMIDE
     Indication: NEUROBLASTOMA
     Dosage: 850 MG/M2, CYCLIC (DAY 1 OF CYCLE 2)
  11. CHLORMETHINE [Suspect]
     Active Substance: MECHLORETHAMINE
     Indication: NEUROBLASTOMA
     Dosage: 6 MG/M2, CYCLIC (DAY 1 OF CYCLE 1)
  12. VINCRISTINE SULFATE. [Suspect]
     Active Substance: VINCRISTINE SULFATE
     Dosage: 1.5 MG/M2, CYCLIC (DAY 1 OF CYCLE 1)

REACTIONS (1)
  - Sepsis [Fatal]
